FAERS Safety Report 8888318 (Version 1)
Quarter: 2012Q4

REPORT INFORMATION
  Report Type: 
  Country: SE (occurrence: SE)
  Receive Date: 20121106
  Receipt Date: 20121106
  Transmission Date: 20130627
  Serious: Yes (Hospitalization)
  Sender: FDA-Public Use
  Company Number: SE-PFIZER INC-2012269018

PATIENT
  Sex: Female
  Weight: 123 kg

DRUGS (12)
  1. GENOTROPIN [Suspect]
     Dosage: 1 mg, 1x/day, 7 injections/week
     Route: 058
     Dates: start: 20060328
  2. DHEA [Concomitant]
     Indication: ACTH DECREASED
     Dosage: UNK
     Dates: start: 20050101
  3. EVOREL [Concomitant]
     Indication: LH DECREASED
     Dosage: UNK
     Dates: start: 20050101
  4. EVOREL [Concomitant]
     Indication: FSH DECREASED
  5. EVOREL [Concomitant]
     Indication: HYPOGONADISM FEMALE
  6. GESTAPURAN [Concomitant]
     Indication: LH DECREASED
     Dosage: UNK
     Dates: start: 20050101
  7. GESTAPURAN [Concomitant]
     Indication: FSH DECREASED
  8. GESTAPURAN [Concomitant]
     Indication: HYPOGONADISM FEMALE
  9. KESTINE [Concomitant]
     Indication: ALLERGY
     Dosage: UNK
     Dates: start: 20050101
  10. LEVAXIN [Concomitant]
     Indication: HYPOTHYROIDISM
     Dosage: UNK
     Dates: start: 20050101
  11. LOMUDAL [Concomitant]
     Indication: ALLERGY
     Dosage: UNK
     Dates: start: 20050101
  12. HYDROCORTONE [Concomitant]
     Indication: ACTH DECREASED
     Dosage: UNK
     Dates: start: 20050101

REACTIONS (1)
  - Surgery [Unknown]
